FAERS Safety Report 10111605 (Version 1)
Quarter: 2014Q2

REPORT INFORMATION
  Report Type: Report from Study
  Country: ES (occurrence: ES)
  Receive Date: 20140425
  Receipt Date: 20140425
  Transmission Date: 20141212
  Serious: Yes (Hospitalization)
  Sender: FDA-Public Use
  Company Number: ES-ASTRAZENECA-2014SE26718

PATIENT
  Age: 82 Year
  Sex: Female

DRUGS (10)
  1. TICAGRELOR [Suspect]
     Indication: ACUTE CORONARY SYNDROME
     Route: 048
     Dates: start: 20131111, end: 20140130
  2. ASPIRIN [Suspect]
     Indication: ACUTE CORONARY SYNDROME
     Route: 048
     Dates: start: 20131111
  3. CARVEDILOL [Concomitant]
  4. ATORVASTATIN [Concomitant]
  5. ENALAPRIL [Concomitant]
  6. NITROGLYCERIN [Concomitant]
  7. INSULIN [Concomitant]
  8. ORAL ANTIDIABETIC [Concomitant]
  9. OMEPRAZOLE [Concomitant]
  10. DULOXETINE [Concomitant]

REACTIONS (1)
  - Gastrointestinal angiodysplasia haemorrhagic [Not Recovered/Not Resolved]
